FAERS Safety Report 8565738-3 (Version None)
Quarter: 2012Q3

REPORT INFORMATION
  Report Type: 
  Country: None (occurrence: None)
  Receive Date: 20120803
  Receipt Date: 20110928
  Transmission Date: 20120928
  Serious: No
  Sender: FDA-Public Use
  Company Number: US-ABBOTT-11P-163-0859256-00

PATIENT
  Sex: Male
  Weight: 90.8 kg

DRUGS (4)
  1. NIASPAN [Suspect]
     Indication: BLOOD CHOLESTEROL
     Dates: start: 20110101, end: 20110101
  2. NIASPAN [Suspect]
     Dosage: ONE IN THE MORNING AND EVENING
     Route: 048
  3. NIASPAN [Suspect]
     Dosage: ONE IN THE MORNING AND EVENING
     Route: 048
  4. ASPIRIN [Concomitant]
     Indication: PRODUCT USED FOR UNKNOWN INDICATION
     Dosage: 30 MINUTES PRIOR TO NIASPAN

REACTIONS (3)
  - PRURITUS [None]
  - SKIN BURNING SENSATION [None]
  - FLUSHING [None]
